FAERS Safety Report 12089250 (Version 1)
Quarter: 2016Q1

REPORT INFORMATION
  Report Type: Spontaneous
  Country: US (occurrence: None)
  Receive Date: 20160217
  Receipt Date: 20160217
  Transmission Date: 20160526
  Serious: No
  Sender: FDA-Public Use
  Company Number: None

PATIENT
  Age: 60 Year
  Sex: Female
  Weight: 67.13 kg

DRUGS (11)
  1. MONTELUKAST [Concomitant]
     Active Substance: MONTELUKAST SODIUM
  2. LEVOTHYROXINE. [Concomitant]
     Active Substance: LEVOTHYROXINE
  3. CELLCEPT [Concomitant]
     Active Substance: MYCOPHENOLATE MOFETIL\MYCOPHENOLATE MOFETIL HYDROCHLORIDE
  4. OXYCODONE [Concomitant]
     Active Substance: OXYCODONE
  5. OMEPRAZOLE. [Concomitant]
     Active Substance: OMEPRAZOLE
  6. CLONAZEPAM. [Concomitant]
     Active Substance: CLONAZEPAM
  7. DULOXETINE 60 MG [Suspect]
     Active Substance: DULOXETINE
     Indication: MAJOR DEPRESSION
     Route: 048
     Dates: start: 20160121, end: 20160126
  8. HYDROXYCHLOROQUINE [Concomitant]
     Active Substance: HYDROXYCHLOROQUINE
  9. FOLIC ACID. [Concomitant]
     Active Substance: FOLIC ACID
  10. CYCLOBENZAPRINE [Concomitant]
     Active Substance: CYCLOBENZAPRINE
  11. LISINOPRIL. [Concomitant]
     Active Substance: LISINOPRIL

REACTIONS (6)
  - Skin irritation [None]
  - Pruritus [None]
  - Nausea [None]
  - Systemic lupus erythematosus [None]
  - Headache [None]
  - Rash [None]

NARRATIVE: CASE EVENT DATE: 20150126
